FAERS Safety Report 9283559 (Version 1)
Quarter: 2013Q2

REPORT INFORMATION
  Report Type: Spontaneous
  Country: ID (occurrence: ID)
  Receive Date: 20130510
  Receipt Date: 20130510
  Transmission Date: 20140414
  Serious: Yes (Hospitalization, Other)
  Sender: FDA-Public Use
  Company Number: PHHY2013ID038693

PATIENT
  Age: 13 Year
  Sex: Male

DRUGS (1)
  1. EXJADE [Suspect]
     Indication: THALASSAEMIA
     Dosage: 1X500 MG
     Route: 048
     Dates: start: 201211, end: 20130416

REACTIONS (20)
  - Post streptococcal glomerulonephritis [Unknown]
  - Blood urea increased [Unknown]
  - Haematuria [Not Recovered/Not Resolved]
  - Renal impairment [Unknown]
  - Creatinine renal clearance decreased [Unknown]
  - Urine analysis abnormal [Unknown]
  - Eye swelling [Recovered/Resolved]
  - Local swelling [Recovered/Resolved]
  - Dyspnoea [Unknown]
  - Hypertension [Not Recovered/Not Resolved]
  - Cardiac failure [Unknown]
  - Oedema [Recovered/Resolved]
  - Cardiomegaly [Unknown]
  - Abdominal distension [Recovered/Resolved]
  - Haematocrit increased [Unknown]
  - Platelet count increased [Unknown]
  - Swelling [Unknown]
  - Haemoglobin decreased [Unknown]
  - White blood cell count decreased [Unknown]
  - Haematochezia [Unknown]
